FAERS Safety Report 17261345 (Version 1)
Quarter: 2019Q4

REPORT INFORMATION
  Report Type: Spontaneous
  Country: US (occurrence: US)
  Receive Date: 20191217
  Receipt Date: 20191217
  Transmission Date: 20200122
  Serious: Yes (Other)
  Sender: FDA-Public Use
  Company Number: None

PATIENT
  Age: 88 Year
  Sex: Female
  Weight: 45.36 kg

DRUGS (6)
  1. FUROSEMIDE 20MG TABLETS [Suspect]
     Active Substance: FUROSEMIDE
     Indication: PERIPHERAL SWELLING
     Dosage: ?          QUANTITY:1 PILL;?
     Route: 048
     Dates: start: 20190916, end: 20191011
  2. METFORMIN [Concomitant]
     Active Substance: METFORMIN HYDROCHLORIDE
  3. MAGNESIUM [Concomitant]
     Active Substance: MAGNESIUM
  4. LISINOPRIL. [Concomitant]
     Active Substance: LISINOPRIL
  5. LEVOTHYROXINE. [Concomitant]
     Active Substance: LEVOTHYROXINE
  6. TRAMADOL (AS NEEDED FOR PAIN) [Concomitant]

REACTIONS (2)
  - Deafness [None]
  - Condition aggravated [None]

NARRATIVE: CASE EVENT DATE: 20190916
